FAERS Safety Report 18657422 (Version 6)
Quarter: 2021Q1

REPORT INFORMATION
  Report Type: Report from Study
  Country: None (occurrence: US)
  Receive Date: 20201224
  Receipt Date: 20210316
  Transmission Date: 20210419
  Serious: Yes (Hospitalization)
  Sender: FDA-Public Use
  Company Number: US-ABBVIE-20K-163-3705544-00

PATIENT
  Age: 69 Year
  Sex: Male
  Weight: 87.17 kg

DRUGS (46)
  1. VENCLEXTA [Suspect]
     Active Substance: VENETOCLAX
     Route: 048
     Dates: start: 20201209, end: 20201215
  2. WARFARIN [Suspect]
     Active Substance: WARFARIN
     Indication: ANTICOAGULANT THERAPY
     Dosage: 3.75 MILLIGRAM (2.5X1.5)MG ON EVERY WEDNESDAY
     Route: 048
  3. WARFARIN [Suspect]
     Active Substance: WARFARIN
     Indication: DEEP VEIN THROMBOSIS
  4. ZEBETA [Concomitant]
     Active Substance: BISOPROLOL FUMARATE
     Indication: HYPERTENSION
     Route: 048
  5. COMPAZINE [Concomitant]
     Active Substance: PROCHLORPERAZINE MALEATE
     Indication: VOMITING
  6. MIRALAX [Concomitant]
     Active Substance: POLYETHYLENE GLYCOL 3350
     Indication: CONSTIPATION
     Dosage: 17 GRAM POWDER FOR SOLUTION
     Route: 048
  7. NORCO [Concomitant]
     Active Substance: ACETAMINOPHEN\HYDROCODONE BITARTRATE
     Indication: DEEP VEIN THROMBOSIS
  8. VENCLEXTA [Suspect]
     Active Substance: VENETOCLAX
     Route: 048
     Dates: start: 20201202, end: 20201208
  9. MIDODRINE [Suspect]
     Active Substance: MIDODRINE
     Indication: PRODUCT USED FOR UNKNOWN INDICATION
     Route: 065
  10. GAZYVA [Concomitant]
     Active Substance: OBINUTUZUMAB
     Indication: CHRONIC LYMPHOCYTIC LEUKAEMIA
  11. METAMUCIL [Concomitant]
     Active Substance: PLANTAGO SEED
     Indication: RECTAL PROLAPSE
     Dosage: PSYLLIUM HUSK (WITH SUGAR) 3.4 GRAM PACKET. TAKE ONE PACKET BY MOUTH ONCE DAILY
     Route: 048
  12. COMPAZINE [Concomitant]
     Active Substance: PROCHLORPERAZINE MALEATE
     Indication: CHRONIC LYMPHOCYTIC LEUKAEMIA
  13. ZOVIRAX [Concomitant]
     Active Substance: ACYCLOVIR
     Indication: CHRONIC LYMPHOCYTIC LEUKAEMIA
     Dosage: TAKE ONE TABLET
     Route: 048
  14. ELAVIL [Concomitant]
     Active Substance: AMITRIPTYLINE HYDROCHLORIDE
     Indication: HEADACHE
     Dosage: TAKE ONE TABLET AT BEDTIME
  15. ROXICODONE [Concomitant]
     Active Substance: OXYCODONE HYDROCHLORIDE
     Indication: PAIN IN EXTREMITY
  16. VENCLEXTA [Suspect]
     Active Substance: VENETOCLAX
     Indication: CHRONIC LYMPHOCYTIC LEUKAEMIA
     Route: 048
     Dates: start: 20201125, end: 20201201
  17. WARFARIN [Suspect]
     Active Substance: WARFARIN
     Indication: THROMBOSIS
  18. TUMS [Concomitant]
     Active Substance: CALCIUM CARBONATE
     Indication: HYPOCALCAEMIA
     Dosage: TAKE TWO TABLETS BY MOUTH THREE TIMES DAILY
     Route: 048
  19. ZYLOPRIM [Concomitant]
     Active Substance: ALLOPURINOL
     Indication: CHRONIC LYMPHOCYTIC LEUKAEMIA
     Dosage: TAKE ONE TABLET
     Route: 048
  20. COMPAZINE [Concomitant]
     Active Substance: PROCHLORPERAZINE MALEATE
     Indication: CHRONIC LYMPHOCYTIC LEUKAEMIA
  21. VITAMIN K [Concomitant]
     Active Substance: PHYTONADIONE
     Indication: PRODUCT USED FOR UNKNOWN INDICATION
  22. VENCLEXTA [Suspect]
     Active Substance: VENETOCLAX
     Route: 048
     Dates: start: 20201216, end: 20201222
  23. IMITREX [Concomitant]
     Active Substance: SUMATRIPTAN SUCCINATE
     Indication: MIGRAINE WITH AURA
     Dosage: TAKE ONE TABLET BY MOUTH TWO TIMES DAILY IF NEEDED
     Route: 048
  24. PROVENTIL HFA [Concomitant]
     Active Substance: ALBUTEROL SULFATE
     Indication: PRODUCT USED FOR UNKNOWN INDICATION
     Dosage: 90MCG/ACTUATION INHALER. INHALE TWO PUFFS BY MOUTH EVERY FOUR HOURS IF NEEDED
     Route: 010
  25. ZOFRAN [Concomitant]
     Active Substance: ONDANSETRON HYDROCHLORIDE
     Indication: VOMITING
  26. BUDESONIDE. [Concomitant]
     Active Substance: BUDESONIDE
     Indication: ASTHMA
     Route: 048
  27. LEVOTHYROXINE. [Concomitant]
     Active Substance: LEVOTHYROXINE
     Indication: PRODUCT USED FOR UNKNOWN INDICATION
  28. WARFARIN [Suspect]
     Active Substance: WARFARIN
     Indication: DEEP VEIN THROMBOSIS
     Dosage: (2.5X1)MG ALL OTHER DAYS EXCEPT WEDNESDAY
     Route: 048
  29. COMPAZINE [Concomitant]
     Active Substance: PROCHLORPERAZINE MALEATE
     Indication: NAUSEA
     Dosage: TAKE ONE TABLET BY MOUTH EVERY SIX HOURS IF NEEDED
     Route: 048
  30. ZOFRAN [Concomitant]
     Active Substance: ONDANSETRON HYDROCHLORIDE
     Indication: CHRONIC LYMPHOCYTIC LEUKAEMIA
     Dosage: TAKE ONE TABLET BY MOUTH EVERY EIGHT HOURS IF NEEDED
     Route: 048
  31. BENADRYL [Concomitant]
     Active Substance: DIPHENHYDRAMINE HYDROCHLORIDE
     Indication: HYPERSENSITIVITY
     Dosage: TAKE 25MG CAPSULE BY MOUTH EVERY 4 HOURS IF NEEDED
     Route: 048
  32. SYNTHROID [Concomitant]
     Active Substance: LEVOTHYROXINE SODIUM
     Indication: POST PROCEDURAL HYPOTHYROIDISM
     Dosage: BEFORE BREAKFAST
     Route: 048
  33. VENCLEXTA [Suspect]
     Active Substance: VENETOCLAX
     Route: 048
     Dates: start: 20201123, end: 20201229
  34. WARFARIN [Suspect]
     Active Substance: WARFARIN
     Indication: INTERNATIONAL NORMALISED RATIO ABNORMAL
  35. MIDODRINE [Suspect]
     Active Substance: MIDODRINE
     Dosage: DOSE INCREASED
     Route: 065
  36. CALCITRIOL. [Concomitant]
     Active Substance: CALCITRIOL
     Indication: HYPOPARATHYROIDISM
  37. NEURONTIN [Concomitant]
     Active Substance: GABAPENTIN
     Indication: MOVEMENT DISORDER
     Dosage: TAKE TWO CAPSULES BY EVERY MORNING, ONE CAPSULE AT NOON AND TWO CAPSULES EVERY EVENING
     Route: 048
  38. FLONASE [Concomitant]
     Active Substance: FLUTICASONE PROPIONATE
     Indication: ACUTE SINUSITIS
     Dosage: 50MCG PER ACTUATION. SHAKE LIQUID AND USE ONE SPRAY IN EACH NOSTRIL EVERYDAY
  39. TYLENOL EXTRA STRENGTH [Concomitant]
     Active Substance: ACETAMINOPHEN
     Indication: PRODUCT USED FOR UNKNOWN INDICATION
     Dosage: TAKE TWO TABLETS. 4000MG IN 24 HOURS.
     Route: 048
  40. ALBUTEROL HFA [Concomitant]
     Active Substance: ALBUTEROL SULFATE
     Indication: PRODUCT USED FOR UNKNOWN INDICATION
     Dosage: NHALE 2 PUFFS BY MOUTH EVERY 4 HOURS IF NEEDED.
  41. VENCLEXTA [Suspect]
     Active Substance: VENETOCLAX
     Route: 048
     Dates: start: 20201230
  42. BACTRIM DS [Concomitant]
     Active Substance: SULFAMETHOXAZOLE\TRIMETHOPRIM
     Indication: CHRONIC LYMPHOCYTIC LEUKAEMIA
     Dosage: 160?800 MG, TAKE 1 TABLET BY MOUTH EVERY MONDAY, WEDNESDAY AND FRIDAY
     Route: 048
  43. SENNA PLUS [Concomitant]
     Active Substance: DOCUSATE SODIUM\SENNOSIDES\SENNOSIDES A AND B
     Indication: CONSTIPATION
     Dosage: 8.6?50 MG TAKE TWO TABLETS TWO TIMES DAILY
     Route: 048
  44. ZOFRAN [Concomitant]
     Active Substance: ONDANSETRON HYDROCHLORIDE
     Indication: NAUSEA
  45. ELAVIL [Concomitant]
     Active Substance: AMITRIPTYLINE HYDROCHLORIDE
     Indication: INSOMNIA
  46. ECOTRIN [Concomitant]
     Active Substance: ASPIRIN
     Indication: CHEST PAIN
     Dosage: TAKE ONE TABLET ONCE DAILY WITH A MEAL
     Route: 048

REACTIONS (24)
  - Ligament sprain [Recovering/Resolving]
  - Musculoskeletal disorder [Recovering/Resolving]
  - Peripheral swelling [Recovered/Resolved]
  - Platelet disorder [Unknown]
  - Increased appetite [Unknown]
  - Skin discolouration [Recovered/Resolved]
  - Nausea [Recovered/Resolved]
  - Heart rate abnormal [Not Recovered/Not Resolved]
  - Fall [Recovered/Resolved]
  - Blood pressure orthostatic decreased [Recovered/Resolved]
  - Pain in extremity [Recovered/Resolved]
  - Limb mass [Not Recovered/Not Resolved]
  - Mobility decreased [Recovering/Resolving]
  - Limb injury [Unknown]
  - Weight increased [Not Recovered/Not Resolved]
  - Hyperhidrosis [Not Recovered/Not Resolved]
  - White blood cell count abnormal [Unknown]
  - International normalised ratio increased [Recovering/Resolving]
  - Joint swelling [Unknown]
  - Blood pressure inadequately controlled [Not Recovered/Not Resolved]
  - Contusion [Unknown]
  - Blood pressure abnormal [Not Recovered/Not Resolved]
  - Haematoma [Recovered/Resolved]
  - Limb injury [Recovered/Resolved]

NARRATIVE: CASE EVENT DATE: 2020
